FAERS Safety Report 5914100-8 (Version None)
Quarter: 2008Q4

REPORT INFORMATION
  Report Type: 
  Country: None (occurrence: None)
  Receive Date: 20081009
  Receipt Date: 20080908
  Transmission Date: 20090506
  Serious: Yes (Other)
  Sender: FDA-Public Use
  Company Number: BR-JNJCH-2007334831

PATIENT
  Sex: Female

DRUGS (3)
  1. MYLANTA PLUS [Suspect]
     Indication: DYSPEPSIA
     Dosage: TEXT:1/2 - 1 TABLET PRN
     Route: 048
  2. MYLANTA PLUS [Suspect]
     Dosage: TEXT:UNSPECIFIED
     Route: 048
  3. ANTIINFLAMMATORY/ANTIRHEUMATIC NON-STEROIDS [Suspect]
     Indication: DRUG USE FOR UNKNOWN INDICATION
     Dosage: TEXT:UNSPECIFIED
     Route: 048

REACTIONS (5)
  - BURNING SENSATION [None]
  - DYSPEPSIA [None]
  - GOUT [None]
  - RHEUMATOID ARTHRITIS [None]
  - SURGERY [None]
